FAERS Safety Report 4342466-1 (Version None)
Quarter: 2004Q1

REPORT INFORMATION
  Report Type: 
  Country: None (occurrence: None)
  Receive Date: 20040213
  Receipt Date: 20031117
  Transmission Date: 20041129
  Serious: Yes (Other)
  Sender: FDA-Public Use
  Company Number: 337104

PATIENT
  Age: 50 Year
  Sex: Male

DRUGS (2)
  1. PEGASYS [Suspect]
     Indication: HEPATITIS C
     Dosage: 180 MCG 1 PER WEEK SUBCUTANEOUS
     Route: 058
     Dates: start: 20030306
  2. COPEGUS [Suspect]
     Indication: HEPATITIS C
     Dosage: 3 DOSE FORM 2 PER DAY ORAL
     Route: 048
     Dates: start: 20030306, end: 20030615

REACTIONS (11)
  - DECREASED ACTIVITY [None]
  - EOSINOPHIL COUNT DECREASED [None]
  - HAEMOGLOBIN DECREASED [None]
  - LYMPHOCYTE COUNT DECREASED [None]
  - MONOCYTE COUNT DECREASED [None]
  - NEUTROPHIL COUNT DECREASED [None]
  - PRURITUS [None]
  - RED BLOOD CELL COUNT DECREASED [None]
  - SINUSITIS [None]
  - VISION BLURRED [None]
  - WHITE BLOOD CELL COUNT DECREASED [None]
